FAERS Safety Report 7943562-X (Version None)
Quarter: 2011Q4

REPORT INFORMATION
  Report Type: 
  Country: None (occurrence: None)
  Receive Date: 20111128
  Receipt Date: 20111118
  Transmission Date: 20120403
  Serious: Yes (Hospitalization, Other)
  Sender: FDA-Public Use
  Company Number: PHHY2011GB96302

PATIENT
  Age: 38 Year
  Sex: Female

DRUGS (3)
  1. PROPRANOLOL [Concomitant]
     Dosage: UNK
  2. CITALOPRAM HYDROBROMIDE [Concomitant]
     Dosage: UNK
  3. AMOXICILLIN [Suspect]
     Indication: LOWER RESPIRATORY TRACT INFECTION
     Dosage: UNK
     Dates: start: 20111003, end: 20111010

REACTIONS (3)
  - RASH [None]
  - SWOLLEN TONGUE [None]
  - ANGIOEDEMA [None]
